FAERS Safety Report 24725386 (Version 1)
Quarter: 2024Q4

REPORT INFORMATION
  Report Type: Spontaneous
  Country: DE (occurrence: DE)
  Receive Date: 20241212
  Receipt Date: 20241212
  Transmission Date: 20250115
  Serious: Yes (Hospitalization)
  Sender: SAMSUNG BIOEPIS
  Company Number: DE-SAMSUNG BIOEPIS-SB-2024-26646

PATIENT
  Age: 70 Year
  Sex: Male
  Weight: 80 kg

DRUGS (7)
  1. TRASTUZUMAB [Suspect]
     Active Substance: TRASTUZUMAB
     Indication: Oesophageal adenocarcinoma
     Dosage: D1: 8 MG/KG, 6 MG/KG, D22/D43- PRE AND POST OP, AFTERWARDS 6 MG/KG D1 Q3W;
     Route: 042
     Dates: start: 20240425
  2. PEMBROLIZUMAB [Suspect]
     Active Substance: PEMBROLIZUMAB
     Indication: Oesophageal adenocarcinoma
     Dosage: 200 MG FLAT DOSE, D1/D22/D43 PRE-AND POST OP AND THEN D1 Q3W;
     Route: 042
     Dates: start: 20240425
  3. PEMBROLIZUMAB [Suspect]
     Active Substance: PEMBROLIZUMAB
     Dosage: 200 MG FLAT DOSE, D1/D22/D43 PRE-AND POST OP AND THEN D1 Q3W; (LAST DOSE)
     Route: 042
     Dates: start: 20240606
  4. OXALIPLATIN [Suspect]
     Active Substance: OXALIPLATIN
     Indication: Oesophageal adenocarcinoma
     Dosage: 85 MG/M2, D1/D15/D29 AND D43 PRE AND POST OP;
     Route: 042
     Dates: start: 20240425
  5. DOCETAXEL [Suspect]
     Active Substance: DOCETAXEL
     Indication: Oesophageal adenocarcinoma
     Dosage: 50 MG/M2, IV, D1/D15/D29 AND D43 PRE AND POST OP;
     Route: 042
     Dates: start: 20240425
  6. LEUCOVORIN [Suspect]
     Active Substance: LEUCOVORIN\LEUCOVORIN CALCIUM
     Indication: Oesophageal adenocarcinoma
     Dosage: 200 MG/M2, IV, D1/D15/D29 AND D 43 PRE AND POST OP;
     Route: 042
     Dates: start: 20240425
  7. FLUOROURACIL [Suspect]
     Active Substance: FLUOROURACIL
     Indication: Oesophageal adenocarcinoma
     Dosage: 2600 MG/M2, IV, D1/D15/D29 AND D43 PRE AND POST OP;
     Route: 042
     Dates: start: 20240425

REACTIONS (3)
  - Hypotension [Recovered/Resolved]
  - Gastrointestinal anastomotic leak [Recovered/Resolved]
  - Off label use [Unknown]

NARRATIVE: CASE EVENT DATE: 20240718
